FAERS Safety Report 24387189 (Version 1)
Quarter: 2024Q4

REPORT INFORMATION
  Report Type: Spontaneous
  Country: US (occurrence: US)
  Receive Date: 20241002
  Receipt Date: 20241002
  Transmission Date: 20250115
  Serious: No
  Sender: QOL
  Company Number: US-QOL Medical, LLC-2162315

PATIENT
  Age: 48 Year
  Sex: Female
  Weight: 82.273 kg

DRUGS (2)
  1. SUCRAID [Suspect]
     Active Substance: SACROSIDASE
     Dates: start: 20230221
  2. XANAX [Concomitant]
     Active Substance: ALPRAZOLAM

REACTIONS (5)
  - Fatigue [Not Recovered/Not Resolved]
  - Dyspnoea [Not Recovered/Not Resolved]
  - Headache [Not Recovered/Not Resolved]
  - Incontinence [Not Recovered/Not Resolved]
  - Nervousness [Not Recovered/Not Resolved]

NARRATIVE: CASE EVENT DATE: 20230201
